FAERS Safety Report 8675517 (Version 2)
Quarter: 2013Q4

REPORT INFORMATION
  Report Type: Spontaneous
  Country: US (occurrence: US)
  Receive Date: 20120720
  Receipt Date: 20131101
  Transmission Date: 20140711
  Serious: No
  Sender: FDA-Public Use
  Company Number: US-009507513-1207USA005272

PATIENT
  Sex: Male

DRUGS (4)
  1. VICTRELIS [Suspect]
     Indication: HEPATITIS C
     Dosage: 800 MG, TID
     Route: 048
     Dates: start: 20120413
  2. RIBAVIRIN (WARRICK) [Suspect]
     Dosage: UNK
     Dates: start: 20120316
  3. PEGASYS [Suspect]
     Dosage: UNK
     Dates: start: 20120316
  4. GLYBURIDE [Concomitant]

REACTIONS (1)
  - Rash [Not Recovered/Not Resolved]
